FAERS Safety Report 16237088 (Version 1)
Quarter: 2019Q2

REPORT INFORMATION
  Report Type: Spontaneous
  Country: US (occurrence: US)
  Receive Date: 20190425
  Receipt Date: 20190425
  Transmission Date: 20190711
  Serious: Yes (Hospitalization, Other)
  Sender: FDA-Public Use
  Company Number: US-LUPIN PHARMACEUTICALS INC.-2019-02452

PATIENT
  Age: 68 Year
  Sex: Male

DRUGS (1)
  1. METHYLPREDNISOLONE. [Suspect]
     Active Substance: METHYLPREDNISOLONE
     Indication: VISION CORRECTION OPERATION
     Dosage: 0.5 MILLILITER, SINGLE
     Route: 031

REACTIONS (2)
  - Necrotising retinitis [Unknown]
  - Blindness [Unknown]
